FAERS Safety Report 4468859-X (Version None)
Quarter: 2004Q4

REPORT INFORMATION
  Report Type: 
  Country: None (occurrence: None)
  Receive Date: 20040917
  Receipt Date: 20040607
  Transmission Date: 20050328
  Serious: No
  Sender: FDA-Public Use
  Company Number: US-JNJFOC-20040602505

PATIENT
  Age: 19 Year
  Sex: Female
  Weight: 70.3075 kg

DRUGS (1)
  1. ORTHO EVRA [Suspect]
     Indication: CONTRACEPTION
     Dosage: 1 DOSES(S), 3 IN 4 WEEKS,TRANSDERMAL
     Route: 062
     Dates: start: 20030501

REACTIONS (1)
  - DYSMENORRHOEA [None]
